FAERS Safety Report 19996420 (Version 2)
Quarter: 2021Q4

REPORT INFORMATION
  Report Type: Spontaneous
  Country: US (occurrence: US)
  Receive Date: 20211026
  Receipt Date: 20211029
  Transmission Date: 20220304
  Serious: No
  Sender: FDA-Public Use
  Company Number: US-PFIZER INC-202101393426

PATIENT
  Age: 72 Year
  Sex: Male
  Weight: 92.52 kg

DRUGS (4)
  1. PRISTIQ EXTENDED-RELEASE [Suspect]
     Active Substance: DESVENLAFAXINE SUCCINATE
     Indication: Major depression
     Dosage: 50 MG, 2X/DAY (FOR 90 DAYS)
     Route: 048
     Dates: start: 20210213
  2. PRISTIQ EXTENDED-RELEASE [Suspect]
     Active Substance: DESVENLAFAXINE SUCCINATE
     Indication: Anger
     Dosage: 2 DF, 1X/DAY (SIG: TAKE 2 TABLET (200 MG) BY ORAL ROUTE ONCE DAILY FOR 90 DAYS)
     Route: 048
  3. NITROGLYCERIN [Suspect]
     Active Substance: NITROGLYCERIN
     Indication: Major depression
     Dosage: 0.4 MG (PLACE ONE TABLET UNDER TRANSLINGUAL ROUTE 1X REPEST X2 PRN)
     Route: 060
     Dates: start: 20200219
  4. NITROGLYCERIN [Suspect]
     Active Substance: NITROGLYCERIN
     Indication: Anger

REACTIONS (1)
  - Drug ineffective [Unknown]
